FAERS Safety Report 6522451-1 (Version None)
Quarter: 2009Q4

REPORT INFORMATION
  Report Type: 
  Country: None (occurrence: None)
  Receive Date: 20091229
  Receipt Date: 20091229
  Transmission Date: 20100525
  Serious: Yes (Hospitalization)
  Sender: FDA-Public Use
  Company Number: None

PATIENT
  Sex: Male
  Weight: 68.4932 kg

DRUGS (9)
  1. VIBATIV [Suspect]
     Indication: STAPHYLOCOCCAL BACTERAEMIA
     Dosage: 500 MG Q24H IV
     Route: 042
     Dates: start: 20091225, end: 20091227
  2. CARBIDOPA-LEVODOPA [Concomitant]
  3. CITALOPRAM HYDROBROMIDE [Concomitant]
  4. DIGOXIN [Concomitant]
  5. METOPROLOL TARTRATE [Concomitant]
  6. AMLODIPINE [Concomitant]
  7. EPOETIN ALFA [Concomitant]
  8. PANTOPRAZOLE [Concomitant]
  9. LINEZOLID [Concomitant]

REACTIONS (2)
  - RENAL IMPAIRMENT [None]
  - URINE OUTPUT DECREASED [None]
